FAERS Safety Report 13094922 (Version 4)
Quarter: 2017Q2

REPORT INFORMATION
  Report Type: Report from Study
  Country: US (occurrence: US)
  Receive Date: 20170106
  Receipt Date: 20170522
  Transmission Date: 20170830
  Serious: Yes (Hospitalization, Other)
  Sender: FDA-Public Use
  Company Number: US-ACTELION-A-NJ2017-147823

PATIENT
  Age: 51 Year
  Sex: Male
  Weight: 71.66 kg

DRUGS (6)
  1. ADCIRCA [Concomitant]
     Active Substance: TADALAFIL
  2. LETAIRIS [Concomitant]
     Active Substance: AMBRISENTAN
  3. UPTRAVI [Suspect]
     Active Substance: SELEXIPAG
     Dosage: 1200 MCG, BID
     Route: 048
  4. UPTRAVI [Suspect]
     Active Substance: SELEXIPAG
     Dosage: 600 MCG, BID
     Route: 048
     Dates: start: 20161107
  5. UPTRAVI [Suspect]
     Active Substance: SELEXIPAG
     Indication: PULMONARY ARTERIAL HYPERTENSION
     Dosage: 1000 MCG, BID
     Route: 048
  6. UPTRAVI [Suspect]
     Active Substance: SELEXIPAG
     Dosage: 1000 MCG, QD
     Route: 048

REACTIONS (16)
  - Metastases to stomach [Unknown]
  - Depression [Unknown]
  - Decreased appetite [Unknown]
  - Headache [Unknown]
  - Fatigue [Unknown]
  - Migraine [Not Recovered/Not Resolved]
  - Somnolence [Unknown]
  - Metastases to lymph nodes [Unknown]
  - Prostate cancer [Unknown]
  - Bladder catheterisation [Unknown]
  - Infection [Unknown]
  - Weight decreased [Unknown]
  - Hepatic cirrhosis [Unknown]
  - Dysuria [Unknown]
  - Lethargy [Unknown]
  - Feeling abnormal [Unknown]
